FAERS Safety Report 8550221-1 (Version None)
Quarter: 2012Q3

REPORT INFORMATION
  Report Type: 
  Country: None (occurrence: None)
  Receive Date: 20120730
  Receipt Date: 20110328
  Transmission Date: 20120928
  Serious: No
  Sender: FDA-Public Use
  Company Number: US-ALLERGAN-1104314US

PATIENT
  Age: 74 Year
  Sex: Female

DRUGS (3)
  1. ALPHAGAN P [Concomitant]
     Indication: GLAUCOMA
     Dosage: BID
  2. LUMIGAN [Suspect]
     Indication: GLAUCOMA
     Dosage: 2 GTT, QHS
     Route: 047
     Dates: start: 20110114, end: 20110324
  3. PRANDIN [Concomitant]
     Indication: DIABETES MELLITUS

REACTIONS (2)
  - VISION BLURRED [None]
  - ILLUSION [None]
